FAERS Safety Report 9264176 (Version 1)
Quarter: 2013Q2

REPORT INFORMATION
  Report Type: Spontaneous
  Country: FR (occurrence: FR)
  Receive Date: 20130430
  Receipt Date: 20130430
  Transmission Date: 20140414
  Serious: Yes (Hospitalization, Disabling)
  Sender: FDA-Public Use
  Company Number: FR-PFIZER INC-2013064652

PATIENT
  Age: 65 Year
  Sex: Male
  Weight: 70 kg

DRUGS (6)
  1. INLYTA [Suspect]
     Indication: RENAL CANCER METASTATIC
     Dosage: 5 MG, 2X/DAY
     Route: 048
     Dates: start: 20130107, end: 20130219
  2. ACTRAPID [Concomitant]
     Dosage: UNK
     Route: 058
     Dates: start: 20130130
  3. AMLOR [Concomitant]
     Dosage: 10 MG, UNK
  4. TAHOR [Concomitant]
     Dosage: 10 MG, UNK
  5. ESIDREX [Concomitant]
     Dosage: 25 MG, UNK
  6. COZAAR [Concomitant]
     Dosage: 100 MG, UNK

REACTIONS (3)
  - Ischaemic stroke [Recovered/Resolved with Sequelae]
  - Retinal vascular thrombosis [Recovered/Resolved with Sequelae]
  - Visual acuity reduced [Unknown]
